FAERS Safety Report 5131689-X (Version None)
Quarter: 2006Q4

REPORT INFORMATION
  Report Type: 
  Country: None (occurrence: None)
  Receive Date: 20061016
  Receipt Date: 20061002
  Transmission Date: 20070319
  Serious: Yes (Life-Threatening, Hospitalization, Disabling)
  Sender: FDA-Public Use
  Company Number: 2006113160

PATIENT
  Age: 67 Year
  Weight: 60 kg

DRUGS (1)
  1. SUTENT [Suspect]
     Indication: METASTATIC RENAL CELL CARCINOMA
     Dosage: 50 MG, ORAL
     Route: 048
     Dates: start: 20060801, end: 20060918

REACTIONS (5)
  - CARDIAC FAILURE ACUTE [None]
  - MUSCLE DISORDER [None]
  - RENAL DISORDER [None]
  - RENAL FAILURE ACUTE [None]
  - THROMBOCYTOPENIA [None]
